FAERS Safety Report 19159766 (Version 2)
Quarter: 2022Q2

REPORT INFORMATION
  Report Type: Spontaneous
  Country: US (occurrence: US)
  Receive Date: 20210420
  Receipt Date: 20220416
  Transmission Date: 20220721
  Serious: No
  Sender: FDA-Public Use
  Company Number: US-ENDO PHARMACEUTICALS INC-2021-001428

PATIENT
  Sex: Male

DRUGS (5)
  1. AVEED [Suspect]
     Active Substance: TESTOSTERONE UNDECANOATE
     Indication: Testicular failure
     Dosage: 750 MG/3 ML, EVERY 10 WEEKS, UNKNOWN
     Route: 065
     Dates: start: 20200326
  2. AVEED [Suspect]
     Active Substance: TESTOSTERONE UNDECANOATE
     Dosage: 750 MG/3 ML, EVERY 10 WEEKS, UNKNOWN
     Route: 065
     Dates: start: 20200424
  3. AVEED [Suspect]
     Active Substance: TESTOSTERONE UNDECANOATE
     Dosage: 750 MG/3 ML, EVERY 10 WEEKS, UNKNOWN
     Route: 065
     Dates: start: 20200710
  4. AVEED [Suspect]
     Active Substance: TESTOSTERONE UNDECANOATE
     Dosage: 750 MG/3 ML, EVERY 10 WEEKS, UNKNOWN
     Route: 065
     Dates: start: 20200925
  5. AVEED [Suspect]
     Active Substance: TESTOSTERONE UNDECANOATE
     Dosage: 750 MG/3 ML, EVERY 10 WEEKS, UNKNOWN
     Route: 065
     Dates: start: 20201222

REACTIONS (2)
  - Drug ineffective [Unknown]
  - Incorrect product administration duration [Recovered/Resolved]
